FAERS Safety Report 14307203 (Version 1)
Quarter: 2017Q4

REPORT INFORMATION
  Report Type: Other
  Country: FR (occurrence: FR)
  Receive Date: 20171220
  Receipt Date: 20171220
  Transmission Date: 20180321
  Serious: Yes (Hospitalization, Other)
  Sender: FDA-Public Use
  Company Number: FR-MACLEODS PHARMACEUTICALS US LTD-MAC2017007011

PATIENT

DRUGS (7)
  1. LERCAN 10 MG, SCORED FILM-COATED TABLET [Suspect]
     Active Substance: LERCANIDIPINE HYDROCHLORIDE
     Indication: PRODUCT USED FOR UNKNOWN INDICATION
     Dosage: 50 DF, UNK
     Route: 048
     Dates: start: 20170814, end: 20170814
  2. TRIMEBUTINE [Suspect]
     Active Substance: TRIMEBUTINE
     Indication: PRODUCT USED FOR UNKNOWN INDICATION
     Dosage: 340 MG, UNK
     Route: 048
     Dates: start: 20170814, end: 20170814
  3. IRBESARTAN. [Suspect]
     Active Substance: IRBESARTAN
     Indication: PRODUCT USED FOR UNKNOWN INDICATION
     Dosage: 7500 MG, UNK
     Route: 048
     Dates: start: 20170814, end: 20170814
  4. FLECAINE L.P 150 MG PROLONGED-RELEASE CAPSULES [Suspect]
     Active Substance: FLECAINIDE ACETATE
     Indication: PRODUCT USED FOR UNKNOWN INDICATION
     Dosage: 20 DF, UNK
     Route: 048
     Dates: start: 20170814, end: 20170814
  5. NOCTAMIDE 2 MG, SCORED TABLET [Suspect]
     Active Substance: LORMETAZEPAM
     Indication: PRODUCT USED FOR UNKNOWN INDICATION
     Dosage: 15 DF, UNK
     Route: 048
     Dates: start: 20170814, end: 20170814
  6. DILTIAZEM HYDROCHLORIDE. [Suspect]
     Active Substance: DILTIAZEM HYDROCHLORIDE
     Indication: PRODUCT USED FOR UNKNOWN INDICATION
     Dosage: 3000 MG, UNK
     Route: 048
     Dates: start: 20170814, end: 20170814
  7. XARELTO [Suspect]
     Active Substance: RIVAROXABAN
     Indication: PRODUCT USED FOR UNKNOWN INDICATION
     Dosage: 14 DF, UNK
     Route: 048
     Dates: start: 20170814, end: 20170814

REACTIONS (2)
  - Cardiogenic shock [Unknown]
  - Coma [Unknown]

NARRATIVE: CASE EVENT DATE: 20170814
